FAERS Safety Report 8582937-5 (Version None)
Quarter: 2012Q3

REPORT INFORMATION
  Report Type: 
  Country: None (occurrence: None)
  Receive Date: 20120809
  Receipt Date: 20120802
  Transmission Date: 20120928
  Serious: Yes (Hospitalization, Other)
  Sender: FDA-Public Use
  Company Number: CZ-GENZYME-CAMP-1002354

PATIENT
  Sex: Female
  Weight: 57 kg

DRUGS (8)
  1. HYDROCORTISONE [Concomitant]
     Indication: PREMEDICATION
     Dosage: 100 MG, UNK
     Route: 065
  2. DITHIADEN [Concomitant]
     Dosage: 1 DF, UNK
     Route: 065
  3. CAMPATH [Suspect]
     Indication: TRANSPLANT REJECTION
     Dosage: 30 MG, UNK
     Route: 058
     Dates: start: 20120729
  4. PARALEN [Concomitant]
     Indication: PREMEDICATION
     Dosage: 1 DF, UNK
     Route: 065
  5. CAMPATH [Suspect]
     Dosage: UNK
     Route: 058
  6. SOLU-MEDROL [Concomitant]
     Indication: PREMEDICATION
     Dosage: 125 MG, UNK
     Route: 065
  7. IMMUNE GLOBULIN NOS [Concomitant]
     Indication: TRANSPLANT REJECTION
     Dosage: UNK
     Route: 042
  8. DITHIADEN [Concomitant]
     Indication: PREMEDICATION
     Dosage: 1 DF, UNK
     Route: 065

REACTIONS (11)
  - NAUSEA [None]
  - DYSPNOEA [None]
  - GRAFT DYSFUNCTION [None]
  - LYMPHOCYTE COUNT INCREASED [None]
  - CONVULSION [None]
  - HYPERHIDROSIS [None]
  - TACHYCARDIA [None]
  - VOMITING [None]
  - MUSCLE SPASMS [None]
  - TREMOR [None]
  - PALLOR [None]
